FAERS Safety Report 6769670-7 (Version None)
Quarter: 2010Q2

REPORT INFORMATION
  Report Type: 
  Country: None (occurrence: None)
  Receive Date: 20100603
  Receipt Date: 20100528
  Transmission Date: 20101027
  Serious: Yes (Other)
  Sender: FDA-Public Use
  Company Number: 2009SP038734

PATIENT
  Age: 28 Year
  Sex: Female

DRUGS (3)
  1. AERIUS (DESLORATADINE /01398501/) (5 MG) [Suspect]
     Indication: RHINITIS SEASONAL
     Dates: end: 20080919
  2. DESLORATADINE [Suspect]
     Indication: RHINITIS SEASONAL
     Dosage: ; PO
     Route: 048
     Dates: start: 20080919, end: 20080926
  3. ORAL CONTRACEPTIVES [Concomitant]

REACTIONS (4)
  - ABNORMAL DREAMS [None]
  - DRUG INEFFECTIVE [None]
  - HALLUCINATION [None]
  - HYPERSENSITIVITY [None]
